FAERS Safety Report 6026860-9 (Version None)
Quarter: 2009Q1

REPORT INFORMATION
  Report Type: 
  Country: None (occurrence: None)
  Receive Date: 20090105
  Receipt Date: 20081230
  Transmission Date: 20090719
  Serious: Yes (Other)
  Sender: FDA-Public Use
  Company Number: US-BAYER-200833920NA

PATIENT
  Age: 41 Year
  Sex: Female

DRUGS (1)
  1. MIRENA [Suspect]
     Indication: CONTRACEPTION
     Route: 015
     Dates: start: 20080720

REACTIONS (3)
  - DYSPAREUNIA [None]
  - GENITAL HAEMORRHAGE [None]
  - INTRA-UTERINE CONTRACEPTIVE DEVICE REMOVAL [None]
